FAERS Safety Report 11359280 (Version 1)
Quarter: 2015Q3

REPORT INFORMATION
  Report Type: Spontaneous
  Country: US (occurrence: None)
  Receive Date: 20150807
  Receipt Date: 20150807
  Transmission Date: 20151125
  Serious: Yes (Other)
  Sender: FDA-Public Use
  Company Number: None

PATIENT
  Age: 51 Year
  Sex: Female
  Weight: 79.38 kg

DRUGS (5)
  1. TOPAMAX [Suspect]
     Active Substance: TOPIRAMATE
     Indication: ILL-DEFINED DISORDER
     Dosage: BY MOUTH
     Route: 048
     Dates: start: 20150527, end: 20150602
  2. TOPAMAX [Suspect]
     Active Substance: TOPIRAMATE
     Indication: MIGRAINE
     Dosage: BY MOUTH
     Route: 048
     Dates: start: 20150527, end: 20150602
  3. OMEPRAZOLE. [Concomitant]
     Active Substance: OMEPRAZOLE
  4. SYNTHROID [Concomitant]
     Active Substance: LEVOTHYROXINE SODIUM
  5. LITHIUM. [Concomitant]
     Active Substance: LITHIUM

REACTIONS (5)
  - Affect lability [None]
  - Insomnia [None]
  - Amnesia [None]
  - Emotional distress [None]
  - Decreased appetite [None]

NARRATIVE: CASE EVENT DATE: 20150601
